FAERS Safety Report 8230220-X (Version None)
Quarter: 2012Q1

REPORT INFORMATION
  Report Type: 
  Country: None (occurrence: None)
  Receive Date: 20120321
  Receipt Date: 20120321
  Transmission Date: 20120608
  Serious: No
  Sender: FDA-Public Use
  Company Number: None

PATIENT
  Age: 58 Year
  Sex: Female

DRUGS (1)
  1. ASMANEX TWISTHALER [Suspect]

REACTIONS (2)
  - MEDICAL DEVICE COMPLICATION [None]
  - DRUG DOSE OMISSION [None]
